FAERS Safety Report 11327547 (Version 4)
Quarter: 2015Q4

REPORT INFORMATION
  Report Type: Spontaneous
  Country: US (occurrence: US)
  Receive Date: 20150731
  Receipt Date: 20151019
  Transmission Date: 20160304
  Serious: No
  Sender: FDA-Public Use
  Company Number: ALCN2015US002141

PATIENT
  Age: 72 Year
  Sex: Female

DRUGS (4)
  1. SYNTHROID [Concomitant]
     Active Substance: LEVOTHYROXINE SODIUM
     Indication: PRODUCT USED FOR UNKNOWN INDICATION
     Dosage: 75 MG, QD
     Route: 048
  2. VITAMIN D [Concomitant]
     Active Substance: CHOLECALCIFEROL
     Indication: PRODUCT USED FOR UNKNOWN INDICATION
     Dosage: UNK
  3. LATANOPROST. [Suspect]
     Active Substance: LATANOPROST
     Indication: GLAUCOMA
     Dosage: 1 GTT, QD
     Route: 047
     Dates: start: 20150612, end: 20150628
  4. LATANOPROST. [Suspect]
     Active Substance: LATANOPROST
     Dosage: 1 GTT, QD
     Route: 047

REACTIONS (18)
  - Neck pain [Recovering/Resolving]
  - Glossodynia [Recovering/Resolving]
  - Eye irritation [Recovered/Resolved]
  - Nightmare [Recovering/Resolving]
  - Eye pain [Recovered/Resolved]
  - Asthenopia [Recovering/Resolving]
  - Photopsia [Recovered/Resolved]
  - Eye disorder [Recovered/Resolved]
  - Dysgeusia [Recovering/Resolving]
  - Drug ineffective [Recovered/Resolved]
  - Dry eye [Recovering/Resolving]
  - Trismus [Recovered/Resolved]
  - Iris hyperpigmentation [Recovering/Resolving]
  - Salivary gland disorder [Recovering/Resolving]
  - Tongue discolouration [Recovering/Resolving]
  - Facial pain [Recovered/Resolved]
  - Eyelid margin crusting [Recovered/Resolved]
  - Ocular hyperaemia [Recovered/Resolved]

NARRATIVE: CASE EVENT DATE: 201502
